FAERS Safety Report 7608208-9 (Version None)
Quarter: 2011Q3

REPORT INFORMATION
  Report Type: 
  Country: None (occurrence: None)
  Receive Date: 20110714
  Receipt Date: 20110630
  Transmission Date: 20111222
  Serious: Yes (Other)
  Sender: FDA-Public Use
  Company Number: US-ELI_LILLY_AND_COMPANY-US201011006027

PATIENT
  Sex: Male
  Weight: 69.34 kg

DRUGS (3)
  1. FORTEO [Suspect]
     Dosage: 20 UG, QD
     Route: 058
  2. FORTEO [Suspect]
     Indication: OSTEOPOROSIS
     Dosage: 20 UG, DAILY (1/D)
     Route: 058
     Dates: start: 20101101
  3. FORTEO [Suspect]
     Dosage: 20 UG, DAILY (1/D)
     Route: 058

REACTIONS (15)
  - BREATHING-RELATED SLEEP DISORDER [None]
  - URINE ANALYSIS ABNORMAL [None]
  - PSORIATIC ARTHROPATHY [None]
  - HYPERSOMNIA [None]
  - MUSCULAR WEAKNESS [None]
  - RHEUMATOID ARTHRITIS [None]
  - PAIN [None]
  - HYPOKINESIA [None]
  - NEPHROLITHIASIS [None]
  - URINARY TRACT INFECTION [None]
  - DIZZINESS [None]
  - MYALGIA [None]
  - PROSTATOMEGALY [None]
  - HAEMATURIA [None]
  - FATIGUE [None]
